FAERS Safety Report 25210767 (Version 1)
Quarter: 2025Q2

REPORT INFORMATION
  Report Type: Spontaneous
  Country: AT (occurrence: AT)
  Receive Date: 20250417
  Receipt Date: 20250417
  Transmission Date: 20250716
  Serious: Yes (Life-Threatening, Other)
  Sender: BAUSCH AND LOMB
  Company Number: AT-BAUSCH-BL-2025-004824

PATIENT
  Age: 46 Year
  Sex: Male

DRUGS (2)
  1. METFORMIN [Suspect]
     Active Substance: METFORMIN HYDROCHLORIDE
     Indication: Product used for unknown indication
     Route: 065
  2. RAMIPRIL [Suspect]
     Active Substance: RAMIPRIL
     Indication: Product used for unknown indication
     Route: 065

REACTIONS (4)
  - Rhabdomyolysis [Unknown]
  - Cardio-respiratory arrest [Unknown]
  - Lactic acidosis [Unknown]
  - Overdose [Unknown]
